FAERS Safety Report 4900455-X (Version None)
Quarter: 2006Q1

REPORT INFORMATION
  Report Type: 
  Country: None (occurrence: None)
  Receive Date: 20060203
  Receipt Date: 20051124
  Transmission Date: 20060701
  Serious: Yes (Disabling)
  Sender: FDA-Public Use
  Company Number: 2005CG01974

PATIENT
  Age: 23911 Day
  Sex: Male
  Weight: 74 kg

DRUGS (7)
  1. CRESTOR [Suspect]
     Indication: HYPERCHOLESTEROLAEMIA
     Route: 048
     Dates: start: 20050310, end: 20050511
  2. CRESTOR [Suspect]
     Route: 048
     Dates: start: 20051201
  3. PLAVIX [Concomitant]
     Indication: TRANSIENT ISCHAEMIC ATTACK
  4. PRETERAX [Concomitant]
     Indication: HYPERTENSION
  5. DAFLON [Concomitant]
     Indication: VARICOSE VEIN
  6. STILNOX [Concomitant]
     Indication: SLEEP DISORDER
  7. TADENAN [Concomitant]
     Indication: BENIGN PROSTATIC HYPERPLASIA
     Route: 048

REACTIONS (1)
  - EYE IRRITATION [None]
